FAERS Safety Report 13785004 (Version 1)
Quarter: 2017Q3

REPORT INFORMATION
  Report Type: Spontaneous
  Country: IT (occurrence: IT)
  Receive Date: 20170724
  Receipt Date: 20170724
  Transmission Date: 20171127
  Serious: Yes (Hospitalization, Other)
  Sender: FDA-Public Use
  Company Number: IT-IMPAX LABORATORIES, INC-2017-IPXL-02147

PATIENT
  Age: 31 Year
  Sex: Male

DRUGS (7)
  1. RISPERIDONE. [Concomitant]
     Active Substance: RISPERIDONE
     Indication: SCHIZOPHRENIA
     Dosage: 6 MG, DAILY
     Route: 065
  2. RISPERIDONE. [Concomitant]
     Active Substance: RISPERIDONE
     Dosage: UP TO 6 MG/D
     Route: 065
  3. CLOZAPINE. [Suspect]
     Active Substance: CLOZAPINE
     Indication: SEIZURE
     Dosage: 75 MG IN MORNING AND 100 MG AT BEDTIME
     Route: 065
  4. DIVALPROEX SODIUM ER [Suspect]
     Active Substance: DIVALPROEX SODIUM
     Indication: SEIZURE
     Dosage: 500 MG, 2 /DAY
     Route: 065
  5. CLOZAPINE. [Suspect]
     Active Substance: CLOZAPINE
     Indication: SCHIZOPHRENIA
     Dosage: 12.5 MG, BEDTIME
     Route: 065
  6. HALOPERIDOL. [Concomitant]
     Active Substance: HALOPERIDOL
     Indication: SCHIZOPHRENIA
     Dosage: 6 MG, DAILY
     Route: 065
  7. HALOPERIDOL. [Concomitant]
     Active Substance: HALOPERIDOL
     Dosage: UNK,UP TO 6 MG/D
     Route: 065

REACTIONS (3)
  - Myocarditis [Recovered/Resolved]
  - Gastrointestinal disorder [Unknown]
  - Pericarditis [Recovered/Resolved]
